FAERS Safety Report 4562694-X (Version None)
Quarter: 2005Q1

REPORT INFORMATION
  Report Type: 
  Country: None (occurrence: None)
  Receive Date: 20050127
  Receipt Date: 20041111
  Transmission Date: 20050727
  Serious: Yes (Other)
  Sender: FDA-Public Use
  Company Number: US-GLAXOSMITHKLINE-A0533858A

PATIENT
  Age: 58 Year
  Sex: Male
  Weight: 100 kg

DRUGS (1)
  1. NICODERM CQ [Suspect]
     Indication: TOBACCO USER
     Route: 062
     Dates: start: 19990101, end: 19990101

REACTIONS (8)
  - APPLICATION SITE REACTION [None]
  - BASAL CELL CARCINOMA [None]
  - HYPERTENSION [None]
  - MAJOR DEPRESSION [None]
  - MEDICATION ERROR [None]
  - OBESITY [None]
  - PIGMENTED NAEVUS [None]
  - SKIN DISORDER [None]
